FAERS Safety Report 11185128 (Version 1)
Quarter: 2015Q2

REPORT INFORMATION
  Report Type: Spontaneous
  Country: IT (occurrence: FR)
  Receive Date: 20150612
  Receipt Date: 20150612
  Transmission Date: 20150821
  Serious: Yes (Hospitalization)
  Sender: FDA-Public Use
  Company Number: FR-FRI-1000077315

PATIENT
  Age: 76 Year
  Sex: Male

DRUGS (4)
  1. FLECAINE [Suspect]
     Active Substance: FLECAINIDE
     Indication: SUPRAVENTRICULAR EXTRASYSTOLES
     Route: 048
     Dates: start: 20150415, end: 20150421
  2. CANDESARTAN [Concomitant]
     Active Substance: CANDESARTAN
     Route: 048
  3. NEBIVOLOL [Suspect]
     Active Substance: NEBIVOLOL
     Indication: VENTRICULAR EXTRASYSTOLES
     Dosage: 2.5 MG
     Route: 048
     Dates: start: 201412, end: 20150421
  4. EUPANTOL [Concomitant]
     Active Substance: PANTOPRAZOLE SODIUM
     Route: 048

REACTIONS (3)
  - Ventricular extrasystoles [Recovering/Resolving]
  - Chest discomfort [Recovering/Resolving]
  - Off label use [Recovered/Resolved]

NARRATIVE: CASE EVENT DATE: 201412
